FAERS Safety Report 10366004 (Version 1)
Quarter: 2014Q3

REPORT INFORMATION
  Report Type: Spontaneous
  Country: IT (occurrence: None)
  Receive Date: 20140804
  Receipt Date: 20140804
  Transmission Date: 20150326
  Serious: Yes (Other)
  Sender: FDA-Public Use
  Company Number: 2014AP003775

PATIENT
  Age: 75 Year
  Sex: Female

DRUGS (5)
  1. VASORETIC (ENALAPRIL MALEATE, ENALAPRIL MALEATE, HYDROCHLOROTHIAZIDE) ? [Concomitant]
  2. METFORMIN HYDROCHLORIDE. [Concomitant]
     Active Substance: METFORMIN HYDROCHLORIDE
  3. CARDIOASPIRIN (ACETYLSALICILIC ACID) [Concomitant]
  4. ZOLPIDEM (ZOLPIDEM) TABLET [Suspect]
     Active Substance: ZOLPIDEM TARTRATE
     Dosage: SINGLE
     Route: 048
     Dates: start: 20140519, end: 20140519
  5. XERISTAR (DULOXETINE HYDROCHLORIDE) [Concomitant]

REACTIONS (3)
  - Intentional self-injury [None]
  - Speech disorder [None]
  - Drug abuse [None]

NARRATIVE: CASE EVENT DATE: 20140519
